FAERS Safety Report 6937449-9 (Version None)
Quarter: 2010Q3

REPORT INFORMATION
  Report Type: 
  Country: None (occurrence: None)
  Receive Date: 20100823
  Receipt Date: 20100823
  Transmission Date: 20110219
  Serious: Yes (Other)
  Sender: FDA-Public Use
  Company Number: None

PATIENT
  Sex: Female
  Weight: 63.5036 kg

DRUGS (1)
  1. CIPROFLOXACIN HCL [Suspect]
     Indication: KIDNEY INFECTION
     Dosage: 1 X2 PO
     Route: 048
     Dates: start: 20100817, end: 20100801

REACTIONS (3)
  - DIZZINESS [None]
  - PAIN [None]
  - PAIN IN EXTREMITY [None]
